FAERS Safety Report 21871515 (Version 5)
Quarter: 2024Q3

REPORT INFORMATION
  Report Type: Report from Study
  Country: CA (occurrence: CA)
  Receive Date: 20230117
  Receipt Date: 20240715
  Transmission Date: 20241017
  Serious: Yes (Hospitalization, Other)
  Sender: VIIV
  Company Number: CA-VIIV HEALTHCARE LIMITED-CA2023003768

PATIENT

DRUGS (5)
  1. CABOTEGRAVIR\RILPIVIRINE [Suspect]
     Active Substance: CABOTEGRAVIR\RILPIVIRINE
     Indication: HIV infection
     Dosage: UNK, Q2M, CABOTEGRAVIR 600MG/3ML, RILPIVIRINE 900MG/3 ML
     Route: 030
     Dates: start: 20220906
  2. CABOTEGRAVIR\RILPIVIRINE [Suspect]
     Active Substance: CABOTEGRAVIR\RILPIVIRINE
  3. CABOTEGRAVIR\RILPIVIRINE [Suspect]
     Active Substance: CABOTEGRAVIR\RILPIVIRINE
  4. CABOTEGRAVIR\RILPIVIRINE [Suspect]
     Active Substance: CABOTEGRAVIR\RILPIVIRINE
     Indication: HIV infection
     Dosage: UNK UNK, Q2M ( CABOTEGRAVIR 600MG/3ML RILPIVIRINE 900MG/3ML)
  5. CABOTEGRAVIR\RILPIVIRINE [Suspect]
     Active Substance: CABOTEGRAVIR\RILPIVIRINE
     Indication: HIV infection
     Dosage: UNK UNK, Q2M (600MG/3ML) CABOTEGRAVIR INJECTION AND (900MG/3ML) RILPIVIRINE INJECTION
     Route: 030

REACTIONS (8)
  - Diarrhoea [Unknown]
  - Haematochezia [Not Recovered/Not Resolved]
  - Anal cancer stage III [Not Recovered/Not Resolved]
  - Rectal cancer [Unknown]
  - Lung neoplasm malignant [Not Recovered/Not Resolved]
  - Dyschezia [Not Recovered/Not Resolved]
  - Vomiting [Unknown]
  - Feeding disorder [Not Recovered/Not Resolved]

NARRATIVE: CASE EVENT DATE: 20221221
